FAERS Safety Report 5711950-8 (Version None)
Quarter: 2008Q2

REPORT INFORMATION
  Report Type: 
  Country: None (occurrence: None)
  Receive Date: 20080421
  Receipt Date: 20080411
  Transmission Date: 20081010
  Serious: Yes (Other)
  Sender: FDA-Public Use
  Company Number: DK-ABBOTT-08P-044-0446776-00

PATIENT
  Sex: Male

DRUGS (1)
  1. HUMIRA [Suspect]
     Indication: PSORIATIC ARTHROPATHY
     Route: 058
     Dates: start: 20071201, end: 20080301

REACTIONS (5)
  - INJECTION SITE PAIN [None]
  - INJECTION SITE SWELLING [None]
  - PSORIASIS [None]
  - RASH GENERALISED [None]
  - SWELLING FACE [None]
